FAERS Safety Report 8274344-X (Version None)
Quarter: 2012Q2

REPORT INFORMATION
  Report Type: 
  Country: None (occurrence: None)
  Receive Date: 20120411
  Receipt Date: 20120402
  Transmission Date: 20120825
  Serious: Yes (Other)
  Sender: FDA-Public Use
  Company Number: ES-ROCHE-1035614

PATIENT
  Sex: Female
  Weight: 88 kg

DRUGS (6)
  1. ENANTYUM [Concomitant]
     Indication: PAIN
     Route: 048
  2. ZOCOR [Concomitant]
     Indication: BLOOD CHOLESTEROL
     Route: 048
  3. OMEPRAZOLE [Concomitant]
     Indication: ABDOMINAL PAIN UPPER
     Route: 048
     Dates: start: 20090919
  4. ESERTIA [Concomitant]
     Indication: DEPRESSION
     Route: 048
     Dates: start: 20090919
  5. TOCILIZUMAB [Suspect]
     Indication: RHEUMATOID ARTHRITIS
     Route: 042
     Dates: start: 20100714
  6. PREDNISONE [Concomitant]
     Indication: RHEUMATOID ARTHRITIS
     Route: 048
     Dates: start: 20090919

REACTIONS (1)
  - METRORRHAGIA [None]
